FAERS Safety Report 6291307-4 (Version None)
Quarter: 2009Q3

REPORT INFORMATION
  Report Type: 
  Country: None (occurrence: None)
  Receive Date: 20090730
  Receipt Date: 20090722
  Transmission Date: 20100115
  Serious: Yes (Other)
  Sender: FDA-Public Use
  Company Number: CA-MERCK-0907CAN00126

PATIENT
  Age: 36 Month
  Sex: Female
  Weight: 15 kg

DRUGS (3)
  1. SINGULAIR [Suspect]
     Route: 048
  2. FLUTICASONE PROPIONATE [Concomitant]
     Route: 065
  3. ALBUTEROL [Concomitant]
     Route: 065

REACTIONS (7)
  - ABNORMAL BEHAVIOUR [None]
  - ABNORMAL DREAMS [None]
  - DEPRESSION [None]
  - DIET REFUSAL [None]
  - EMOTIONAL DISORDER [None]
  - FATIGUE [None]
  - HALLUCINATION, VISUAL [None]
